FAERS Safety Report 8307117-X (Version None)
Quarter: 2012Q2

REPORT INFORMATION
  Report Type: 
  Country: None (occurrence: None)
  Receive Date: 20120420
  Receipt Date: 20120413
  Transmission Date: 20120825
  Serious: No
  Sender: FDA-Public Use
  Company Number: 2012SP019811

PATIENT

DRUGS (1)
  1. SAPHRIS [Suspect]
     Dosage: ;SL
     Route: 060

REACTIONS (3)
  - SWOLLEN TONGUE [None]
  - HYPOAESTHESIA ORAL [None]
  - AGITATION [None]
